FAERS Safety Report 7799919-3 (Version None)
Quarter: 2011Q4

REPORT INFORMATION
  Report Type: 
  Country: None (occurrence: None)
  Receive Date: 20111006
  Receipt Date: 20111003
  Transmission Date: 20120403
  Serious: Yes (Other)
  Sender: FDA-Public Use
  Company Number: US-TEVA-303459USA

PATIENT
  Age: 67 Year
  Sex: Female

DRUGS (1)
  1. MYCOPHENOLIC ACID [Suspect]
     Indication: WEGENER'S GRANULOMATOSIS
     Dosage: 2000 MILLIGRAM;

REACTIONS (1)
  - ALVEOLAR PROTEINOSIS [None]
